FAERS Safety Report 15658090 (Version 1)
Quarter: 2018Q4

REPORT INFORMATION
  Report Type: Spontaneous
  Country: US (occurrence: US)
  Receive Date: 20181115
  Receipt Date: 20181115
  Transmission Date: 20190205
  Serious: Yes (Death, Hospitalization)
  Sender: FDA-Public Use
  Company Number: None

PATIENT
  Age: 5 Year
  Sex: Male
  Weight: 22.1 kg

DRUGS (1)
  1. CYTARABINE. [Suspect]
     Active Substance: CYTARABINE
     Dates: end: 20181012

REACTIONS (4)
  - Rectal haemorrhage [None]
  - Pyrexia [None]
  - Epistaxis [None]
  - Disease progression [None]

NARRATIVE: CASE EVENT DATE: 20181106
